FAERS Safety Report 9883756 (Version 1)
Quarter: 2014Q1

REPORT INFORMATION
  Report Type: Spontaneous
  Country: US (occurrence: US)
  Receive Date: 20140210
  Receipt Date: 20140210
  Transmission Date: 20141002
  Serious: No
  Sender: FDA-Public Use
  Company Number: US-009507513-1402USA003974

PATIENT
  Sex: Female

DRUGS (2)
  1. NEXPLANON [Suspect]
     Indication: CONTRACEPTION
     Dosage: UNK
     Route: 059
     Dates: start: 20140206, end: 20140206
  2. NEXPLANON [Suspect]
     Dosage: UNK (PLACED IN THE OTHER ARM)
     Route: 059
     Dates: start: 20140206

REACTIONS (1)
  - Device expulsion [Unknown]
